FAERS Safety Report 15110152 (Version 1)
Quarter: 2018Q3

REPORT INFORMATION
  Report Type: Spontaneous
  Country: US (occurrence: US)
  Receive Date: 20180705
  Receipt Date: 20180705
  Transmission Date: 20181010
  Serious: No
  Sender: FDA-Public Use
  Company Number: US-PFIZER INC-2018267006

PATIENT
  Age: 57 Year
  Sex: Female

DRUGS (3)
  1. DOCETAXEL. [Suspect]
     Active Substance: DOCETAXEL
     Indication: BREAST CANCER
     Dosage: 1 MG, WEEKLY
     Dates: start: 20110210, end: 20110313
  2. HERCEPTIN [Concomitant]
     Active Substance: TRASTUZUMAB
  3. PARAPLATIN [Concomitant]
     Active Substance: CARBOPLATIN

REACTIONS (1)
  - Alopecia [Not Recovered/Not Resolved]

NARRATIVE: CASE EVENT DATE: 201103
